FAERS Safety Report 10425856 (Version 1)
Quarter: 2014Q3

REPORT INFORMATION
  Report Type: Spontaneous
  Country: TR (occurrence: TR)
  Receive Date: 20140903
  Receipt Date: 20140903
  Transmission Date: 20150326
  Serious: Yes (Death, Other)
  Sender: FDA-Public Use
  Company Number: TR-009507513-1409TUR000672

PATIENT
  Age: 32 Year
  Sex: Female

DRUGS (2)
  1. CYTARABINE (+) ETOPOSIDE (+) IDARUBICIN HYDROCHLORIDE [Concomitant]
     Indication: BREAST CANCER
     Dosage: UNK
     Dates: start: 201205
  2. POSACONAZOLE [Suspect]
     Active Substance: POSACONAZOLE
     Indication: PROPHYLAXIS
     Dosage: UNK
     Dates: start: 201205

REACTIONS (2)
  - Drug ineffective [Unknown]
  - Sepsis [Fatal]
